FAERS Safety Report 8128002-2 (Version None)
Quarter: 2012Q1

REPORT INFORMATION
  Report Type: 
  Country: None (occurrence: None)
  Receive Date: 20120210
  Receipt Date: 20120131
  Transmission Date: 20120608
  Serious: Yes (Hospitalization)
  Sender: FDA-Public Use
  Company Number: US-ACTELION-A-US2012-60563

PATIENT

DRUGS (3)
  1. COUMADIN [Concomitant]
  2. REVATIO [Concomitant]
  3. TRACLEER [Suspect]
     Indication: PULMONARY ARTERIAL HYPERTENSION
     Dosage: UNK
     Route: 048
     Dates: start: 20051011

REACTIONS (4)
  - HYPERPARATHYROIDISM [None]
  - FALL [None]
  - PARATHYROID GLAND ENLARGEMENT [None]
  - BLOOD CALCIUM INCREASED [None]
